FAERS Safety Report 18932617 (Version 3)
Quarter: 2021Q2

REPORT INFORMATION
  Report Type: Report from Study
  Country: US (occurrence: US)
  Receive Date: 20210224
  Receipt Date: 20210417
  Transmission Date: 20210717
  Serious: No
  Sender: FDA-Public Use
  Company Number: NVSC2021US038614

PATIENT
  Age: 64 Year
  Sex: Female

DRUGS (2)
  1. ENTRESTO [Suspect]
     Active Substance: SACUBITRIL\VALSARTAN
     Indication: PRODUCT USED FOR UNKNOWN INDICATION
     Dosage: 97103 MG, BID (SINCE 4 YEARS)
     Route: 048
  2. ENTRESTO [Suspect]
     Active Substance: SACUBITRIL\VALSARTAN
     Route: 048

REACTIONS (6)
  - Nasal congestion [Unknown]
  - Cough [Unknown]
  - Hypersensitivity [Unknown]
  - COVID-19 [Unknown]
  - Pyrexia [Unknown]
  - Head discomfort [Unknown]

NARRATIVE: CASE EVENT DATE: 20210211
